FAERS Safety Report 16367193 (Version 1)
Quarter: 2019Q2

REPORT INFORMATION
  Report Type: Spontaneous
  Country: US (occurrence: US)
  Receive Date: 20190529
  Receipt Date: 20190529
  Transmission Date: 20190711
  Serious: No
  Sender: FDA-Public Use
  Company Number: US-GLAXOSMITHKLINE-US2019093021

PATIENT
  Age: 45 Year
  Sex: Male

DRUGS (1)
  1. FLONASE [Suspect]
     Active Substance: FLUTICASONE PROPIONATE
     Indication: HYPERSENSITIVITY
     Dosage: I STOPPED USING IT TWICE DAILY AFTER ABOUT TEN DAYS AND ONLY USED ONE SPRAY IN EACH NOSTRIL.
     Dates: start: 2018

REACTIONS (3)
  - Epistaxis [Unknown]
  - Incorrect product administration duration [Unknown]
  - Inappropriate schedule of product administration [Unknown]
